FAERS Safety Report 4733561-3 (Version None)
Quarter: 2005Q3

REPORT INFORMATION
  Report Type: 
  Country: None (occurrence: None)
  Receive Date: 20050729
  Receipt Date: 20050720
  Transmission Date: 20060218
  Serious: Yes (Other)
  Sender: FDA-Public Use
  Company Number: 2005-07-1353

PATIENT

DRUGS (2)
  1. TEMODAL [Suspect]
     Indication: ADENOCARCINOMA
     Dosage: ORAL
     Route: 048
  2. RADIATION [Concomitant]

REACTIONS (2)
  - METASTASES TO CENTRAL NERVOUS SYSTEM [None]
  - PULMONARY MASS [None]
